FAERS Safety Report 5088297-9 (Version None)
Quarter: 2006Q3

REPORT INFORMATION
  Report Type: 
  Country: None (occurrence: None)
  Receive Date: 20060821
  Receipt Date: 20060802
  Transmission Date: 20061208
  Serious: Yes (Other)
  Sender: FDA-Public Use
  Company Number: CHPA2006US07604

PATIENT
  Age: 60 Year
  Sex: Female
  Weight: 71.2 kg

DRUGS (2)
  1. NICOTINE [Suspect]
     Indication: SMOKING CESSATION THERAPY
     Dosage: 21 MG, QD, TRANSDERMAL
     Route: 062
     Dates: start: 20060726, end: 20060802
  2. DIAZEPAM [Concomitant]

REACTIONS (1)
  - DEPRESSED MOOD [None]
